FAERS Safety Report 9636723 (Version 2)
Quarter: 2013Q4

REPORT INFORMATION
  Report Type: Spontaneous
  Country: IT (occurrence: IT)
  Receive Date: 20131022
  Receipt Date: 20131223
  Transmission Date: 20140711
  Serious: Yes (Life-Threatening)
  Sender: FDA-Public Use
  Company Number: IT-ACCORD-020010

PATIENT
  Age: 44 Year
  Sex: Female
  Weight: 64 kg

DRUGS (5)
  1. PACLITAXEL [Suspect]
     Indication: OVARIAN CANCER
     Dosage: 175 MG /MSQ BSA, 6 MG/ML, 300 MG/50ML 1 GLASS AMPOULE
     Route: 042
     Dates: start: 20131002, end: 20131002
  2. GRANISETRON [Concomitant]
     Dosage: 1 MG /ML, 5 GLASS VIALS 3 ML
     Route: 042
     Dates: start: 20131002, end: 20131002
  3. CARBOPLATINO TEVA [Concomitant]
     Dosage: 1 BOTLE 600 MG/60 ML
     Route: 042
     Dates: start: 20131002, end: 20131002
  4. TRIMETON [Concomitant]
     Dosage: 10 MG/1 ML, 5 VIALS 1 ML
     Route: 042
     Dates: start: 20131002, end: 20131002
  5. DEXAMETHASONE [Concomitant]
     Dosage: 8 MG /2 ML, 1 VIAL 2 ML
     Route: 042
     Dates: start: 20131002, end: 20131002

REACTIONS (3)
  - Erythema [Recovered/Resolved]
  - Back pain [Recovered/Resolved]
  - Choking sensation [Recovered/Resolved]
